FAERS Safety Report 5858418-6 (Version None)
Quarter: 2008Q3

REPORT INFORMATION
  Report Type: 
  Country: None (occurrence: None)
  Receive Date: 20080826
  Receipt Date: 20080815
  Transmission Date: 20090109
  Serious: Yes (Other)
  Sender: FDA-Public Use
  Company Number: US-ROCHE-540007

PATIENT
  Sex: Female

DRUGS (4)
  1. PEG-INTERFERON A-2A (RO 25-8310) [Suspect]
     Dosage: THE PATIENT WAS TAKING PEGASYS PREFILLED SYRINGE 180 MCG / 0.5 ML WEEKLY. SKIPPED ONE WEEK OF PEG-I+
     Route: 065
     Dates: start: 20070910
  2. PEG-INTERFERON A-2A (RO 25-8310) [Suspect]
     Route: 065
     Dates: end: 20080808
  3. RIBAVIRIN [Suspect]
     Route: 065
     Dates: start: 20070910
  4. RIBAVIRIN [Suspect]
     Route: 065
     Dates: end: 20080808

REACTIONS (6)
  - ANAEMIA [None]
  - APPENDICITIS [None]
  - BIPOLAR DISORDER [None]
  - BLOOD PRESSURE DECREASED [None]
  - MYOCARDIAL ISCHAEMIA [None]
  - WHITE BLOOD CELL COUNT DECREASED [None]
